FAERS Safety Report 9425825 (Version 2)
Quarter: 2013Q4

REPORT INFORMATION
  Report Type: Spontaneous
  Country: GB (occurrence: GB)
  Receive Date: 20130729
  Receipt Date: 20131112
  Transmission Date: 20140711
  Serious: Yes (Other)
  Sender: FDA-Public Use
  Company Number: GB-ACTAVIS-2013-13209

PATIENT
  Age: 62 Year
  Sex: Male

DRUGS (3)
  1. DICLOFENAC SODIUM (UNKNOWN) [Suspect]
     Indication: BACK PAIN
     Dosage: 50 MG, UNKNOWN
     Route: 048
     Dates: start: 20130404, end: 20130531
  2. OMEPRAZOLE (UNKNOWN) [Suspect]
     Indication: PROPHYLAXIS
     Dosage: 20 MG, UNKNOWN
     Route: 048
     Dates: start: 20130404, end: 20130531
  3. VITAMIN C                          /00008001/ [Concomitant]
     Indication: PRODUCT USED FOR UNKNOWN INDICATION
     Dosage: UNK
     Route: 065

REACTIONS (1)
  - Liver function test abnormal [Recovering/Resolving]
